FAERS Safety Report 24561910 (Version 1)
Quarter: 2024Q4

REPORT INFORMATION
  Report Type: Spontaneous
  Country: US (occurrence: US)
  Receive Date: 20241029
  Receipt Date: 20241029
  Transmission Date: 20250115
  Serious: Yes (Other)
  Sender: PAREXEL
  Company Number: US-TETRAPHASE PHARMACEUTICALS, INC-2024-INNO-US000002

PATIENT

DRUGS (1)
  1. XERAVA [Suspect]
     Active Substance: ERAVACYCLINE DIHYDROCHLORIDE
     Indication: Product used for unknown indication
     Dosage: UNK

REACTIONS (1)
  - Pancreatitis [Recovered/Resolved]
